FAERS Safety Report 14526608 (Version 1)
Quarter: 2018Q1

REPORT INFORMATION
  Report Type: Spontaneous
  Country: US (occurrence: US)
  Receive Date: 20180213
  Receipt Date: 20180213
  Transmission Date: 20180509
  Serious: No
  Sender: FDA-Public Use
  Company Number: US-ASTRAZENECA-2018SE18570

PATIENT
  Sex: Female

DRUGS (3)
  1. BYDUREON BCISE [Suspect]
     Active Substance: EXENATIDE
     Route: 058
  2. BYDUREON [Suspect]
     Active Substance: EXENATIDE
     Dosage: SINGLE DOSE TRAY
     Route: 058
  3. BYDUREON [Suspect]
     Active Substance: EXENATIDE
     Dosage: 2 MG ONCE A WEEK PEN
     Route: 058

REACTIONS (2)
  - Visual acuity reduced [Unknown]
  - Wrong technique in product usage process [Unknown]
